FAERS Safety Report 23935252 (Version 1)
Quarter: 2024Q2

REPORT INFORMATION
  Report Type: Spontaneous
  Country: US (occurrence: US)
  Receive Date: 20240604
  Receipt Date: 20240604
  Transmission Date: 20240715
  Serious: No
  Sender: FDA-Public Use
  Company Number: US-TEVA-VS-3201634

PATIENT
  Age: 72 Year

DRUGS (1)
  1. AUSTEDO [Suspect]
     Active Substance: DEUTETRABENAZINE
     Indication: Tardive dyskinesia
     Dosage: 3 TABLETS IN THE MORNING, 1 TABLET MID-DAY AND 3 TABLETS IN THE EVENING
     Route: 065

REACTIONS (1)
  - Off label use [Unknown]
